FAERS Safety Report 5328274-3 (Version None)
Quarter: 2007Q2

REPORT INFORMATION
  Report Type: 
  Country: None (occurrence: None)
  Receive Date: 20070518
  Receipt Date: 20070514
  Transmission Date: 20071010
  Serious: Yes (Hospitalization, Other)
  Sender: FDA-Public Use
  Company Number: PHBS2007SE08079

PATIENT
  Age: 68 Year
  Sex: Female

DRUGS (13)
  1. ZOMETA [Suspect]
     Indication: OSTEOPOROSIS
     Dosage: 4 MG, ONCE/SINGLE
     Route: 042
     Dates: start: 20040715, end: 20040715
  2. OPTINATE [Suspect]
     Indication: OSTEOPOROSIS
     Dosage: 35 MG, QW
     Route: 048
     Dates: start: 20050923
  3. FOSAMAX [Suspect]
     Indication: OSTEOPOROSIS
     Dosage: 10 MG/DAY
     Route: 048
     Dates: start: 20000923, end: 20050901
  4. PAMIDRONATE DISODIUM [Suspect]
     Dosage: 30 MG/DAY
     Route: 042
     Dates: start: 20040710, end: 20040712
  5. ACETAMINOPHEN [Concomitant]
     Dosage: 500 MG, UNK
  6. DUROFERON [Concomitant]
     Dosage: 100 MG, UNK
  7. PREDNISOLONE [Concomitant]
     Dosage: 5 MG, UNK
  8. DIGOXIN [Concomitant]
     Dosage: 0.13 MG, UNK
  9. METADON [Concomitant]
     Dosage: 10 MG, UNK
  10. TROMBYL [Concomitant]
     Dosage: 75 MG, UNK
  11. AMIMOX [Concomitant]
     Dosage: 750 MG/DAY
  12. COZAAR [Concomitant]
     Dosage: 12.5 MG, UNK
  13. OXYCONTIN [Concomitant]
     Dosage: 20 MG, UNK

REACTIONS (5)
  - IMPAIRED HEALING [None]
  - JAW FRACTURE [None]
  - OSTEONECROSIS [None]
  - PULPITIS DENTAL [None]
  - TOOTH EXTRACTION [None]
